FAERS Safety Report 4600454-1 (Version None)
Quarter: 2005Q1

REPORT INFORMATION
  Report Type: 
  Country: None (occurrence: None)
  Receive Date: 20050304
  Receipt Date: 20050302
  Transmission Date: 20050727
  Serious: Yes (Death, Other)
  Sender: FDA-Public Use
  Company Number: MAG-2005-0000335

PATIENT
  Age: 71 Year
  Sex: Male

DRUGS (4)
  1. MORPHINE SULFATE [Suspect]
     Dosage: SEE IMAGE
     Route: 048
  2. BETAMETHASONE [Suspect]
     Indication: NAUSEA
     Dosage: SEE IMAGE
     Route: 048
  3. VOLTAREN [Suspect]
     Indication: CANCER PAIN
     Dosage: 75 MG, DAILY
  4. LOPERAMIDE HCL [Suspect]
     Indication: DIARRHOEA
     Dosage: 2 MG, DAILY

REACTIONS (9)
  - CONSTIPATION [None]
  - DIARRHOEA [None]
  - DUODENAL PERFORATION [None]
  - GASTROINTESTINAL MOTILITY DISORDER [None]
  - INTESTINAL HYPOMOTILITY [None]
  - LEUKOPENIA [None]
  - MALAISE [None]
  - NAUSEA [None]
  - PERITONITIS [None]
